FAERS Safety Report 5309518-0 (Version None)
Quarter: 2007Q2

REPORT INFORMATION
  Report Type: 
  Country: None (occurrence: None)
  Receive Date: 20070427
  Receipt Date: 20070125
  Transmission Date: 20071010
  Serious: No
  Sender: FDA-Public Use
  Company Number: US-GLAXOSMITHKLINE-A0637046A

PATIENT
  Age: 40 Year
  Sex: Female

DRUGS (7)
  1. AMERGE [Suspect]
     Indication: MIGRAINE
     Dosage: 2.5MG AS REQUIRED
     Route: 048
     Dates: start: 20050101
  2. NAPROSYN [Concomitant]
  3. NORTRIPTYLINE HCL [Concomitant]
  4. KARIVA [Concomitant]
  5. SYNTHROID [Concomitant]
  6. IRON SUPPLEMENTS [Concomitant]
  7. MULTI-VITAMIN [Concomitant]

REACTIONS (1)
  - PAIN IN EXTREMITY [None]
